FAERS Safety Report 10265590 (Version 2)
Quarter: 2014Q2

REPORT INFORMATION
  Report Type: Spontaneous
  Country: US (occurrence: US)
  Receive Date: 20140627
  Receipt Date: 20140627
  Transmission Date: 20141212
  Serious: Yes (Hospitalization, Other)
  Sender: FDA-Public Use
  Company Number: US-BAXTER-2014BAX030662

PATIENT
  Sex: Male

DRUGS (3)
  1. DIANEAL LOW CALCIUM [Suspect]
     Indication: RENAL FAILURE CHRONIC
     Route: 033
     Dates: end: 20140606
  2. DIANEAL LOW CALCIUM [Suspect]
     Indication: RENAL FAILURE CHRONIC
     Route: 033
     Dates: end: 20140606
  3. PERCOCET [Suspect]
     Indication: PAIN IN EXTREMITY
     Route: 048
     Dates: start: 201406

REACTIONS (6)
  - Confusional state [Recovering/Resolving]
  - Pain in extremity [Recovering/Resolving]
  - Clostridium difficile infection [Recovering/Resolving]
  - Incorrect dose administered [Recovering/Resolving]
  - Abasia [Recovering/Resolving]
  - Fluid overload [Recovering/Resolving]
